FAERS Safety Report 9260786 (Version 1)
Quarter: 2013Q2

REPORT INFORMATION
  Report Type: Spontaneous
  Country: US (occurrence: US)
  Receive Date: 20130429
  Receipt Date: 20130429
  Transmission Date: 20140414
  Serious: Yes (Other)
  Sender: FDA-Public Use
  Company Number: US-MYLANLABS-2013S1008717

PATIENT
  Age: 28 Year
  Sex: Female

DRUGS (6)
  1. PREDNISONE [Suspect]
     Indication: SYSTEMIC LUPUS ERYTHEMATOSUS
     Route: 065
  2. PREDNISONE [Suspect]
     Indication: LUPUS NEPHRITIS
     Route: 065
  3. PREDNISONE [Suspect]
     Indication: SYSTEMIC LUPUS ERYTHEMATOSUS
     Dosage: HIGH DOSE
     Route: 065
  4. PREDNISONE [Suspect]
     Indication: LUPUS NEPHRITIS
     Dosage: HIGH DOSE
     Route: 065
  5. AZATHIOPRINE [Suspect]
     Indication: LUPUS NEPHRITIS
     Route: 065
  6. PLAQUENIL [Suspect]
     Indication: LUPUS NEPHRITIS
     Route: 065

REACTIONS (2)
  - Growth retardation [Unknown]
  - Maternal exposure during pregnancy [Recovered/Resolved]
